FAERS Safety Report 10090085 (Version 2)
Quarter: 2014Q2

REPORT INFORMATION
  Report Type: Spontaneous
  Country: JP (occurrence: JP)
  Receive Date: 20140421
  Receipt Date: 20140421
  Transmission Date: 20141212
  Serious: Yes (Other)
  Sender: FDA-Public Use
  Company Number: PHHY2013JP133656

PATIENT
  Age: 64 Year
  Sex: Female
  Weight: 33 kg

DRUGS (3)
  1. PARLODEL [Suspect]
     Indication: ECTOPIC ACTH SYNDROME
     Dosage: 2.5 MG
     Route: 048
     Dates: start: 20130409, end: 20130418
  2. METYRAPONE [Suspect]
     Indication: HYPERCORTICOIDISM
     Route: 048
     Dates: start: 201304
  3. POTASSIUM CHLORIDE [Suspect]
     Indication: HYPOKALAEMIA

REACTIONS (8)
  - Adrenal insufficiency [Recovered/Resolved]
  - Blood pressure decreased [Recovered/Resolved]
  - Nausea [Recovered/Resolved]
  - Atypical mycobacterial infection [Not Recovered/Not Resolved]
  - Pyrexia [Recovered/Resolved]
  - C-reactive protein increased [Unknown]
  - Infection [Unknown]
  - Drug ineffective [Unknown]
